FAERS Safety Report 4580048-7 (Version None)
Quarter: 2005Q1

REPORT INFORMATION
  Report Type: 
  Country: None (occurrence: None)
  Receive Date: 20050214
  Receipt Date: 20050204
  Transmission Date: 20050727
  Serious: Yes (Hospitalization)
  Sender: FDA-Public Use
  Company Number: US-BRISTOL-MYERS SQUIBB COMPANY-12851275

PATIENT
  Age: 73 Year
  Sex: Female

DRUGS (3)
  1. CISPLATIN [Suspect]
     Indication: SMALL CELL LUNG CANCER STAGE UNSPECIFIED
     Dosage: CYCLE 3, ADMINISTERED ON DAYS 1 + 8
     Route: 042
     Dates: start: 20020429, end: 20020617
  2. IRINOTECAN HCL [Suspect]
     Indication: SMALL CELL LUNG CANCER STAGE UNSPECIFIED
     Dosage: CYCLE 3, ADMINISTERED ON DAYS 1 + 8
     Route: 042
     Dates: start: 20020429, end: 20020617
  3. LOMOTIL [Concomitant]
     Indication: DIARRHOEA
     Route: 048
     Dates: end: 20020624

REACTIONS (1)
  - DEHYDRATION [None]
